FAERS Safety Report 16053675 (Version 1)
Quarter: 2019Q1

REPORT INFORMATION
  Report Type: Spontaneous
  Country: FR (occurrence: FR)
  Receive Date: 20190308
  Receipt Date: 20190308
  Transmission Date: 20190418
  Serious: Yes (Other)
  Sender: FDA-Public Use
  Company Number: FR-MYLANLABS-2019M1021391

PATIENT
  Age: 81 Year
  Sex: Female
  Weight: 71 kg

DRUGS (2)
  1. EPIRUBICIN [Suspect]
     Active Substance: EPIRUBICIN
     Indication: BREAST CANCER
     Dosage: 75 MILLIGRAM/SQ. METER
     Route: 041
     Dates: start: 20180502, end: 20180613
  2. CYCLOPHOSPHAMIDE. [Suspect]
     Active Substance: CYCLOPHOSPHAMIDE
     Indication: BREAST CANCER
     Dosage: 500 MILLIGRAM/SQ. METER
     Route: 041
     Dates: start: 20180502, end: 20180613

REACTIONS (1)
  - Acute cutaneous lupus erythematosus [Not Recovered/Not Resolved]

NARRATIVE: CASE EVENT DATE: 20180531
